FAERS Safety Report 9780598 (Version 2)
Quarter: 2013Q4

REPORT INFORMATION
  Report Type: Report from Study
  Country: US (occurrence: US)
  Receive Date: 20131224
  Receipt Date: 20131230
  Transmission Date: 20140711
  Serious: Yes (Hospitalization)
  Sender: FDA-Public Use
  Company Number: US-ROCHE-1321873

PATIENT
  Sex: Female

DRUGS (3)
  1. XELODA [Suspect]
     Indication: PROPHYLAXIS
     Dosage: 2 500MG PILLS AND 2 150MG PILLS,IN THE MORNING AND AT NIGHT
     Route: 048
     Dates: start: 20131025, end: 20131105
  2. XELODA [Suspect]
     Dosage: 2 500MG PILLS, IN THE MORNING AND AT NIGHT
     Route: 048
     Dates: start: 201305
  3. OXALIPLATIN [Suspect]
     Indication: PRODUCT USED FOR UNKNOWN INDICATION
     Route: 065
     Dates: start: 20131025, end: 20131025

REACTIONS (13)
  - Blood electrolytes decreased [Recovered/Resolved]
  - Blood potassium decreased [Recovered/Resolved]
  - Blood sodium decreased [Recovered/Resolved]
  - Malaise [Recovered/Resolved]
  - Decreased appetite [Recovered/Resolved]
  - Vomiting [Recovered/Resolved]
  - Oral candidiasis [Recovered/Resolved]
  - Dehydration [Recovered/Resolved]
  - Dizziness [Recovered/Resolved]
  - General physical health deterioration [Unknown]
  - Nausea [Recovered/Resolved]
  - Weight decreased [Recovered/Resolved]
  - Oropharyngeal candidiasis [Recovered/Resolved]
